FAERS Safety Report 24379654 (Version 1)
Quarter: 2024Q3

REPORT INFORMATION
  Report Type: Spontaneous
  Country: GB (occurrence: GB)
  Receive Date: 20240930
  Receipt Date: 20240930
  Transmission Date: 20241017
  Serious: Yes (Death, Hospitalization, Other)
  Sender: PURDUE
  Company Number: GB-AUROBINDO-AUR-APL-2024-034890

PATIENT
  Age: 64 Year
  Sex: Male

DRUGS (2)
  1. MORPHINE SULFATE [Suspect]
     Active Substance: MORPHINE SULFATE
     Indication: Product used for unknown indication
     Dosage: UNK
     Route: 065
  2. ZOPICLONE [Suspect]
     Active Substance: ZOPICLONE
     Indication: Product used for unknown indication
     Dosage: UNK (REPORTED AS UNSPECIFIED  ZOPICLONE TABLETS EVERY TWO  WEEK, WHICH IS 6 TIMES THE  LICENSED AMOU
     Route: 048

REACTIONS (7)
  - Intentional overdose [Fatal]
  - Toxicity to various agents [Fatal]
  - Drug dependence [Unknown]
  - Intentional product misuse [Unknown]
  - Product monitoring error [Unknown]
  - Drug abuse [Unknown]
  - Therapy cessation [Unknown]

NARRATIVE: CASE EVENT DATE: 20230207
